FAERS Safety Report 24738571 (Version 1)
Quarter: 2024Q4

REPORT INFORMATION
  Report Type: Spontaneous
  Country: US (occurrence: US)
  Receive Date: 20241216
  Receipt Date: 20241216
  Transmission Date: 20250115
  Serious: No
  Sender: PFIZER
  Company Number: US-PFIZER INC-202400319237

PATIENT
  Age: 9 Year
  Sex: Female

DRUGS (2)
  1. GENOTROPIN [Suspect]
     Active Substance: SOMATROPIN
     Dosage: 0.8 MG ALTERNATING WITH 1MG NIGHTLY
     Dates: start: 202307
  2. GENOTROPIN [Suspect]
     Active Substance: SOMATROPIN
     Dosage: 0.8 MG ALTERNATING WITH 1MG NIGHTLY
     Dates: start: 202307

REACTIONS (3)
  - Device difficult to use [Unknown]
  - Discomfort [Unknown]
  - Device mechanical issue [Unknown]
